FAERS Safety Report 10557967 (Version 1)
Quarter: 2014Q4

REPORT INFORMATION
  Report Type: Spontaneous
  Country: CN (occurrence: CN)
  Receive Date: 20141031
  Receipt Date: 20141031
  Transmission Date: 20150529
  Serious: Yes (Other)
  Sender: FDA-Public Use
  Company Number: CN-BRISTOL-MYERS SQUIBB COMPANY-21535380

PATIENT
  Age: 25 Year
  Sex: Male

DRUGS (1)
  1. BARACLUDE [Suspect]
     Active Substance: ENTECAVIR
     Indication: HEPATITIS B
     Route: 048
     Dates: start: 2007

REACTIONS (4)
  - Hypoaesthesia [Unknown]
  - Hepatic neoplasm [Unknown]
  - Dry mouth [Unknown]
  - Hepatitis B DNA increased [Unknown]
